FAERS Safety Report 7704371-X (Version None)
Quarter: 2011Q3

REPORT INFORMATION
  Report Type: 
  Country: None (occurrence: None)
  Receive Date: 20110823
  Receipt Date: 20110819
  Transmission Date: 20111222
  Serious: Yes (Other)
  Sender: FDA-Public Use
  Company Number: CA-MERCK-1108USA02377

PATIENT
  Age: 70 Year
  Sex: Female
  Weight: 64 kg

DRUGS (4)
  1. ZOCOR [Suspect]
     Route: 048
  2. AREPANRIX H1N1 [Suspect]
     Indication: PROPHYLAXIS
     Route: 065
  3. BISOPROLOL [Concomitant]
     Route: 065
  4. RIVASA [Concomitant]
     Route: 065

REACTIONS (5)
  - DIZZINESS [None]
  - GAIT DISTURBANCE [None]
  - MYALGIA [None]
  - DECREASED APPETITE [None]
  - ASTHENIA [None]
